FAERS Safety Report 24230376 (Version 1)
Quarter: 2024Q3

REPORT INFORMATION
  Report Type: Spontaneous
  Country: US (occurrence: US)
  Receive Date: 20240821
  Receipt Date: 20240821
  Transmission Date: 20241017
  Serious: No
  Sender: HETERO
  Company Number: US-HETERO-HET2024US02711

PATIENT

DRUGS (1)
  1. FINGOLIMOD [Suspect]
     Active Substance: FINGOLIMOD
     Indication: Product used for unknown indication
     Dosage: UNK
     Route: 048
     Dates: start: 2023

REACTIONS (2)
  - Unevaluable event [Unknown]
  - Drug ineffective [Unknown]
